FAERS Safety Report 17700853 (Version 2)
Quarter: 2020Q3

REPORT INFORMATION
  Report Type: Report from Study
  Country: CA (occurrence: CA)
  Receive Date: 20200424
  Receipt Date: 20200812
  Transmission Date: 20201102
  Serious: Yes (Other)
  Sender: FDA-Public Use
  Company Number: CA-INCYTE CORPORATION-2020IN003764

PATIENT

DRUGS (4)
  1. JAKAVI [Suspect]
     Active Substance: RUXOLITINIB
     Indication: POLYCYTHAEMIA VERA
     Dosage: 10 MG, BID (STRENGTH 10 MG)
     Route: 048
     Dates: start: 20200307
  2. COUMADIN [Concomitant]
     Active Substance: WARFARIN SODIUM
     Indication: HEPATIC VEIN THROMBOSIS
     Dosage: 5 MG
     Route: 065
     Dates: start: 20200708
  3. JAKAVI [Suspect]
     Active Substance: RUXOLITINIB
     Dosage: 5 MG, BID (STRENGTH 5 MG)
     Route: 048
     Dates: start: 20200615
  4. COUMADIN [Concomitant]
     Active Substance: WARFARIN SODIUM
     Dosage: 2 MG
     Route: 065

REACTIONS (13)
  - Dry mouth [Unknown]
  - Dizziness [Unknown]
  - Crying [Unknown]
  - Fatigue [Unknown]
  - Neuropathy peripheral [Recovering/Resolving]
  - Chills [Unknown]
  - Venous haemorrhage [Unknown]
  - Ascites [Unknown]
  - Insomnia [Unknown]
  - Pain in extremity [Unknown]
  - Hepatic vein thrombosis [Unknown]
  - Malaise [Unknown]
  - Vein disorder [Unknown]
